FAERS Safety Report 6968369-1 (Version None)
Quarter: 2010Q3

REPORT INFORMATION
  Report Type: 
  Country: None (occurrence: None)
  Receive Date: 20100903
  Receipt Date: 20100903
  Transmission Date: 20110219
  Serious: Yes (Other)
  Sender: FDA-Public Use
  Company Number: None

PATIENT
  Age: 66 Year
  Sex: Female
  Weight: 136.0791 kg

DRUGS (1)
  1. MISOPROSTOL [Suspect]
     Indication: SURGERY
     Dosage: 4 TABLETS 1 TIME ORAL 7/27/10 FROM 695/A TO ABOUT 800/A
     Route: 048
     Dates: start: 20100727

REACTIONS (5)
  - DRY THROAT [None]
  - DYSPHAGIA [None]
  - OROPHARYNGEAL PAIN [None]
  - PHARYNGEAL ERYTHEMA [None]
  - THROAT TIGHTNESS [None]
